FAERS Safety Report 9380714 (Version 1)
Quarter: 2013Q3

REPORT INFORMATION
  Report Type: Spontaneous
  Country: FR (occurrence: FR)
  Receive Date: 20130702
  Receipt Date: 20130702
  Transmission Date: 20140515
  Serious: No
  Sender: FDA-Public Use
  Company Number: FR-JNJFOC-20130611638

PATIENT
  Age: 73 Year
  Sex: Male

DRUGS (1)
  1. DUROGESIC [Suspect]
     Indication: CANCER PAIN
     Route: 062

REACTIONS (2)
  - Wrong technique in drug usage process [Unknown]
  - Off label use [Unknown]
